FAERS Safety Report 12558572 (Version 2)
Quarter: 2016Q3

REPORT INFORMATION
  Report Type: Spontaneous
  Country: FR (occurrence: FR)
  Receive Date: 20160714
  Receipt Date: 20160914
  Transmission Date: 20161109
  Serious: Yes (Death, Other)
  Sender: FDA-Public Use
  Company Number: FR-BRISTOL-MYERS SQUIBB COMPANY-BMS-2016-056102

PATIENT
  Age: 54 Year
  Sex: Male
  Weight: 67 kg

DRUGS (3)
  1. LYRICA [Concomitant]
     Active Substance: PREGABALIN
     Indication: PAIN
     Dosage: 200 MG, QD
     Route: 048
  2. OPDIVO [Suspect]
     Active Substance: NIVOLUMAB
     Indication: LUNG NEOPLASM MALIGNANT
     Dosage: 200 MG, UNK
     Route: 042
     Dates: start: 20150713, end: 20150911
  3. OXYCONTIN [Concomitant]
     Active Substance: OXYCODONE HYDROCHLORIDE
     Indication: PAIN
     Dosage: 1 DF, QD
     Route: 048

REACTIONS (3)
  - Intestinal perforation [Fatal]
  - Peritonitis [Fatal]
  - Septic shock [Fatal]

NARRATIVE: CASE EVENT DATE: 20150920
